FAERS Safety Report 10257935 (Version 1)
Quarter: 2014Q2

REPORT INFORMATION
  Report Type: Spontaneous
  Country: US (occurrence: None)
  Receive Date: 20140620
  Receipt Date: 20140620
  Transmission Date: 20141212
  Serious: Yes (Congenital Anomaly)
  Sender: FDA-Public Use
  Company Number: A1077033A

PATIENT
  Age: 50 Year
  Sex: Male

DRUGS (1)
  1. SODIUM FLUORIDE (FORMULATION UNKNOWN) (SODIUM FLUORIDE) [Suspect]
     Indication: DENTAL DISORDER PROPHYLAXIS
     Dates: start: 20140606, end: 20140606

REACTIONS (4)
  - Haemoptysis [None]
  - Drug administration error [None]
  - Dysphagia [None]
  - Condition aggravated [None]
